FAERS Safety Report 12236087 (Version 1)
Quarter: 2016Q2

REPORT INFORMATION
  Report Type: Spontaneous
  Country: JP (occurrence: JP)
  Receive Date: 20160404
  Receipt Date: 20160404
  Transmission Date: 20160815
  Serious: Yes (Other)
  Sender: FDA-Public Use
  Company Number: JP-PFIZER INC-2016155340

PATIENT
  Age: 69 Year
  Sex: Male

DRUGS (3)
  1. METHYCOBAL [Concomitant]
     Active Substance: METHYLCOBALAMIN
  2. LYRICA [Suspect]
     Active Substance: PREGABALIN
     Indication: BACK PAIN
     Dosage: 25 MG, 2X/DAY
     Route: 048
     Dates: start: 20131219
  3. SHIGMABITAN /00274301/ [Concomitant]

REACTIONS (1)
  - Urine odour abnormal [Recovered/Resolved]

NARRATIVE: CASE EVENT DATE: 20160107
